FAERS Safety Report 5263699-6 (Version None)
Quarter: 2007Q1

REPORT INFORMATION
  Report Type: 
  Country: None (occurrence: None)
  Receive Date: 20070313
  Receipt Date: 20070307
  Transmission Date: 20070707
  Serious: Yes (Hospitalization)
  Sender: FDA-Public Use
  Company Number: GB-BRISTOL-MYERS SQUIBB COMPANY-13704531

PATIENT
  Age: 42 Year
  Sex: Female

DRUGS (5)
  1. PACLITAXEL [Suspect]
     Indication: BREAST CANCER
  2. DEXAMETHASONE [Concomitant]
  3. DOMPERIDONE [Concomitant]
  4. LANSOPRAZOLE [Concomitant]
  5. ONDANSETRON [Concomitant]

REACTIONS (2)
  - NEUTROPENIC SEPSIS [None]
  - PANCREATITIS NECROTISING [None]
